FAERS Safety Report 6987496-6 (Version None)
Quarter: 2010Q3

REPORT INFORMATION
  Report Type: 
  Country: None (occurrence: None)
  Receive Date: 20100916
  Receipt Date: 20100909
  Transmission Date: 20110219
  Serious: Yes (Death)
  Sender: FDA-Public Use
  Company Number: PHHY2010GB60813

PATIENT
  Age: 55 Year
  Sex: Female

DRUGS (2)
  1. CLOZAPINE [Suspect]
     Dosage: 650 MG/DAY
  2. CLOZAPINE [Suspect]
     Dosage: 450 MG/DAY

REACTIONS (3)
  - ANTIPSYCHOTIC DRUG LEVEL INCREASED [None]
  - DRUG TOXICITY [None]
  - PULMONARY CONGESTION [None]
